FAERS Safety Report 6473268-8 (Version None)
Quarter: 2009Q4

REPORT INFORMATION
  Report Type: 
  Country: None (occurrence: None)
  Receive Date: 20091204
  Receipt Date: 20080708
  Transmission Date: 20100525
  Serious: Yes (Life-Threatening, Hospitalization)
  Sender: FDA-Public Use
  Company Number: US-ELI_LILLY_AND_COMPANY-US200806003702

PATIENT
  Sex: Female
  Weight: 132.43 kg

DRUGS (32)
  1. CYMBALTA [Suspect]
     Dosage: 60 MG EACH MORNING
     Route: 048
  2. BYETTA [Concomitant]
     Dosage: 5 UG, UNK
     Route: 058
     Dates: start: 20080423, end: 20080428
  3. NOVOLOG MIX 70/30 [Concomitant]
     Dosage: 50 U, EACH MORNING
  4. NOVOLOG MIX 70/30 [Concomitant]
     Dosage: 1 D/F, UNK
  5. AVINZA [Concomitant]
     Dosage: 60 MG, UNK
  6. CALCIUM [Concomitant]
     Dosage: 1 D/F, UNK
  7. PRILOSEC [Concomitant]
     Dosage: 20 MG DAILY
  8. SIMVASTATIN [Concomitant]
     Dosage: 80 MG EACH MORNING
  9. XANAX [Concomitant]
     Dosage: 2 MG, AS NEEDED
  10. NEURONTIN [Concomitant]
     Dosage: 300 MG, EACH MORNING
  11. NEURONTIN [Concomitant]
     Dosage: 600 MG, EACH EVENING
  12. PANTOPRAZOLE [Concomitant]
     Dosage: 40 MG, EACH MORNING
  13. FLUCONAZOLE [Concomitant]
     Dosage: 100 MG, EACH MORNING
  14. FUROSEMIDE [Concomitant]
     Dosage: 40 MG, AS NEEDED
  15. ALPRAZOLAM [Concomitant]
     Dosage: 2 MG, AS NEEDED
     Route: 048
  16. DETROL [Concomitant]
     Dosage: 2 MG, 2/D
  17. PROVENTIL-HFA [Concomitant]
     Dosage: 1 D/F, AS NEEDED
  18. LANTUS [Concomitant]
     Dosage: 85 U, EACH EVENING
  19. LANTUS [Concomitant]
     Dosage: 45 U, 2/D
  20. NITROGLYCERIN [Concomitant]
     Dosage: 1 D/F, AS NEEDED
  21. NITROGLYCERIN [Concomitant]
     Dosage: 0.4 MG, AS NEEDED
  22. VITAMIN D [Concomitant]
     Dosage: 50000 U, MONTHLY (1/M)
  23. VITAMIN D [Concomitant]
     Dosage: 50000 U, WEEKLY (1/W)
  24. ZYPREXA [Concomitant]
     Dosage: 5 MG, EACH EVENING
  25. MULTI-VITAMIN [Concomitant]
     Dosage: 1 D/F, UNK
  26. SYMLIN [Concomitant]
     Dosage: 2 ML, 3/D
  27. ASPIRIN [Concomitant]
     Dosage: 81 MG, DAILY (1/D)
  28. NORVASC [Concomitant]
     Dosage: 10 MG, DAILY (1/D)
  29. COREG [Concomitant]
     Indication: HYPERTENSION
     Dosage: 3.125 MG, 2/D
  30. FLONASE [Concomitant]
     Dosage: 1 D/F, DAILY (1/D)
  31. ALBUTEROL [Concomitant]
     Dosage: 1 D/F, UNK
     Dates: start: 20080101
  32. NOVOLIN 70/30 [Concomitant]
     Indication: BLOOD GLUCOSE INCREASED
     Dosage: 50 U, UNK
     Dates: start: 20080428

REACTIONS (13)
  - ACUTE MYOCARDIAL INFARCTION [None]
  - BLOOD CREATINE PHOSPHOKINASE INCREASED [None]
  - DEHYDRATION [None]
  - ENCEPHALOPATHY [None]
  - HEPATIC FAILURE [None]
  - MALAISE [None]
  - MYOCLONUS [None]
  - NAUSEA [None]
  - RENAL FAILURE [None]
  - RESPIRATORY FAILURE [None]
  - SEPSIS [None]
  - SHOCK [None]
  - SKIN DISORDER [None]
